FAERS Safety Report 22060827 (Version 1)
Quarter: 2023Q1

REPORT INFORMATION
  Report Type: Spontaneous
  Country: CN (occurrence: CN)
  Receive Date: 20230303
  Receipt Date: 20230303
  Transmission Date: 20230417
  Serious: Yes (Hospitalization, Other)
  Sender: FDA-Public Use
  Company Number: CN-ASTELLAS-2023US007058

PATIENT
  Age: 7 Year
  Sex: Male
  Weight: 20 kg

DRUGS (7)
  1. TACROLIMUS [Suspect]
     Active Substance: TACROLIMUS
     Indication: Renal transplant
     Route: 048
     Dates: start: 20210609, end: 20210613
  2. TACROLIMUS [Suspect]
     Active Substance: TACROLIMUS
     Route: 048
     Dates: start: 202106, end: 202106
  3. TACROLIMUS [Suspect]
     Active Substance: TACROLIMUS
     Route: 048
     Dates: start: 202106
  4. MYCOPHENOLATE MOFETIL [Concomitant]
     Active Substance: MYCOPHENOLATE MOFETIL
     Indication: Renal transplant
     Dosage: 0.25 MG, EVERY 12 HOURS
     Route: 048
     Dates: start: 20210609, end: 20210613
  5. METHYLPREDNISOLONE SODIUM SUCCINATE [Concomitant]
     Active Substance: METHYLPREDNISOLONE SODIUM SUCCINATE
     Indication: Renal transplant
     Dosage: 200 MG, ONCE DAILY (INTRAVENOUSLY DRIPPED)
     Route: 042
     Dates: start: 20210609, end: 2021
  6. METHYLPREDNISOLONE SODIUM SUCCINATE [Concomitant]
     Active Substance: METHYLPREDNISOLONE SODIUM SUCCINATE
     Route: 065
     Dates: start: 2021
  7. PREDNISONE ACETATE [Concomitant]
     Active Substance: PREDNISONE ACETATE
     Indication: Renal transplant
     Dosage: 25 MG, ONCE DAILY (ON THE 3RD DAY AFTER TRANSPLANTATION)
     Route: 048
     Dates: start: 20210610

REACTIONS (2)
  - Toxicity to various agents [Recovered/Resolved]
  - Posterior reversible encephalopathy syndrome [Recovered/Resolved]

NARRATIVE: CASE EVENT DATE: 20210601
